FAERS Safety Report 18009067 (Version 1)
Quarter: 2020Q3

REPORT INFORMATION
  Report Type: Spontaneous
  Country: US (occurrence: US)
  Receive Date: 20200710
  Receipt Date: 20200710
  Transmission Date: 20201103
  Serious: Yes (Hospitalization, Other)
  Sender: FDA-Public Use
  Company Number: US-SAOL THERAPEUTICS-2019SAO00263

PATIENT
  Age: 9 Year
  Sex: Female

DRUGS (2)
  1. LIORESAL [Suspect]
     Active Substance: BACLOFEN
     Dosage: 371 ?G, \DAY
     Route: 037
  2. LIORESAL [Suspect]
     Active Substance: BACLOFEN
     Dosage: 748.9 ?G, \DAY
     Route: 037

REACTIONS (7)
  - Vomiting [Unknown]
  - Hypotension [Unknown]
  - Drug withdrawal syndrome [Unknown]
  - Flushing [Unknown]
  - Hypertension [Unknown]
  - Fall [Recovered/Resolved]
  - Device physical property issue [Recovered/Resolved]

NARRATIVE: CASE EVENT DATE: 20190619
